FAERS Safety Report 10045546 (Version 1)
Quarter: 2014Q1

REPORT INFORMATION
  Report Type: Spontaneous
  Country: US (occurrence: US)
  Receive Date: 20140328
  Receipt Date: 20140328
  Transmission Date: 20141002
  Serious: No
  Sender: FDA-Public Use
  Company Number: US-TEVA-471333USA

PATIENT
  Age: 41 Year
  Sex: Female
  Weight: 68.1 kg

DRUGS (9)
  1. PROAIR HFA [Suspect]
     Indication: BRONCHITIS
  2. LUNESTA [Concomitant]
     Indication: INSOMNIA
  3. REQUIP [Concomitant]
     Indication: RESTLESS LEGS SYNDROME
  4. NORTRIPTYLINE [Concomitant]
     Indication: MIGRAINE
  5. HYDROCHLOROTHIAZIDE [Concomitant]
     Indication: LOCAL SWELLING
  6. CALCIUM WITH VITAMIN D [Concomitant]
     Indication: SUPPLEMENTATION THERAPY
  7. ALLERGY SHOTS [Concomitant]
     Indication: SEASONAL ALLERGY
  8. ZYRTEC [Concomitant]
     Indication: SEASONAL ALLERGY
  9. QVAR [Concomitant]
     Indication: BRONCHITIS

REACTIONS (3)
  - Lip pain [Not Recovered/Not Resolved]
  - Lip blister [Not Recovered/Not Resolved]
  - Chapped lips [Not Recovered/Not Resolved]
